FAERS Safety Report 10974125 (Version 1)
Quarter: 2015Q2

REPORT INFORMATION
  Report Type: Spontaneous
  Country: GB (occurrence: GB)
  Receive Date: 20150401
  Receipt Date: 20150401
  Transmission Date: 20150821
  Serious: Yes (Other)
  Sender: FDA-Public Use
  Company Number: GB-CIPLA LTD.-2015GB02531

PATIENT

DRUGS (5)
  1. TRAMADOL [Suspect]
     Active Substance: TRAMADOL
     Indication: OSTEOARTHRITIS
  2. CITALOPRAM [Suspect]
     Active Substance: CITALOPRAM HYDROBROMIDE
     Indication: OSTEOARTHRITIS
     Dosage: 90 MG, EVERY 12 HOURS
     Route: 048
     Dates: start: 2012, end: 20140309
  3. TRAMADOL [Suspect]
     Active Substance: TRAMADOL
     Indication: ARTHRALGIA
     Dosage: 100 MG, UNK
     Route: 048
     Dates: start: 2013, end: 20140309
  4. TRAMADOL [Suspect]
     Active Substance: TRAMADOL
     Indication: ANXIETY
  5. CITALOPRAM [Suspect]
     Active Substance: CITALOPRAM HYDROBROMIDE
     Indication: ANXIETY
     Dosage: 40 MG, UNK

REACTIONS (10)
  - Confusional state [Recovered/Resolved]
  - Speech disorder [Recovered/Resolved]
  - Skin discolouration [Recovered/Resolved]
  - Medication error [Recovered/Resolved]
  - Muscle rigidity [Recovered/Resolved]
  - Disorientation [Recovered/Resolved]
  - Drug interaction [Recovered/Resolved]
  - Fall [Recovered/Resolved]
  - Unresponsive to stimuli [Recovered/Resolved]
  - Bruxism [Recovered/Resolved]

NARRATIVE: CASE EVENT DATE: 20140309
